FAERS Safety Report 8151914-0 (Version None)
Quarter: 2012Q1

REPORT INFORMATION
  Report Type: 
  Country: None (occurrence: None)
  Receive Date: 20120221
  Receipt Date: 20120215
  Transmission Date: 20120608
  Serious: No
  Sender: FDA-Public Use
  Company Number: US-PFIZER INC-2012042099

PATIENT
  Sex: Female

DRUGS (1)
  1. SUTENT [Suspect]
     Dosage: 12.5 MG, TAKE 4 CAPSULES (50 MG) DAILY
     Route: 048

REACTIONS (1)
  - EPISTAXIS [None]
